FAERS Safety Report 8762526 (Version 2)
Quarter: 2012Q4

REPORT INFORMATION
  Report Type: 
  Country: US (occurrence: US)
  Receive Date: 20120829
  Receipt Date: 20121129
  Transmission Date: 20130627
  Serious: No
  Sender: FDA-Public Use
  Company Number: US-PFIZER INC-2012210973

PATIENT
  Age: 28 Year
  Sex: Female
  Weight: 54.42 kg

DRUGS (3)
  1. LYRICA [Suspect]
     Indication: NERVE DAMAGE
     Dosage: 50 mg or 75 mg, Unk
     Dates: start: 201004
  2. LYRICA [Suspect]
     Indication: HEADACHE
     Dosage: Unk
     Dates: start: 2010
  3. LYRICA [Suspect]
     Dosage: 150 mg in the morning and 225 mg at night, 2x/day
     Dates: start: 201208

REACTIONS (2)
  - Headache [Not Recovered/Not Resolved]
  - Irritability [Unknown]
